FAERS Safety Report 9393725 (Version 1)
Quarter: 2013Q3

REPORT INFORMATION
  Report Type: Spontaneous
  Country: US (occurrence: US)
  Receive Date: 20130710
  Receipt Date: 20130710
  Transmission Date: 20140515
  Serious: Yes (Hospitalization, Other)
  Sender: FDA-Public Use
  Company Number: US-ASTRAZENECA-2013SE50120

PATIENT
  Age: 0 Week
  Sex: Female
  Weight: 3.6 kg

DRUGS (6)
  1. SEROQUEL [Suspect]
     Route: 064
     Dates: end: 201302
  2. KLONOPIN [Suspect]
     Route: 064
  3. DEPAKOTE [Suspect]
     Route: 064
  4. TOPAMAX [Suspect]
     Route: 064
     Dates: end: 201302
  5. ELAVIL [Suspect]
     Route: 064
     Dates: end: 2012
  6. LASIX [Suspect]
     Route: 064

REACTIONS (6)
  - Heart disease congenital [Unknown]
  - Trisomy 21 [Unknown]
  - Congenital megacolon [Unknown]
  - Post procedural complication [Unknown]
  - Suture rupture [Unknown]
  - Gastrointestinal anastomotic leak [Recovered/Resolved]
